FAERS Safety Report 18361067 (Version 1)
Quarter: 2020Q4

REPORT INFORMATION
  Report Type: Spontaneous
  Country: IN (occurrence: IN)
  Receive Date: 20201008
  Receipt Date: 20201008
  Transmission Date: 20210114
  Serious: Yes (Other)
  Sender: FDA-Public Use
  Company Number: IN-LUPIN PHARMACEUTICALS INC.-2020-06865

PATIENT
  Age: 40 Year
  Sex: Male

DRUGS (4)
  1. AMPICILLIN [Concomitant]
     Active Substance: AMPICILLIN
     Indication: ENDOCARDITIS ENTEROCOCCAL
     Dosage: UNK
     Route: 042
     Dates: start: 2018
  2. AMPICILLIN AND SULBACTAM [Suspect]
     Active Substance: AMPICILLIN SODIUM\SULBACTAM SODIUM
     Indication: ENDOCARDITIS ENTEROCOCCAL
     Dosage: UNK
     Route: 065
     Dates: start: 20180301, end: 20180304
  3. CEFTRIAXONE. [Suspect]
     Active Substance: CEFTRIAXONE
     Indication: ENDOCARDITIS ENTEROCOCCAL
     Dosage: UNK
     Route: 065
     Dates: start: 20180301, end: 20180304
  4. GENTAMICIN. [Concomitant]
     Active Substance: GENTAMICIN
     Indication: ENDOCARDITIS ENTEROCOCCAL
     Dosage: UNK
     Route: 042
     Dates: start: 2018

REACTIONS (4)
  - Rash maculo-papular [Unknown]
  - Pruritus [Unknown]
  - Dry skin [Unknown]
  - Drug hypersensitivity [Unknown]
